FAERS Safety Report 15467499 (Version 1)
Quarter: 2018Q4

REPORT INFORMATION
  Report Type: Spontaneous
  Country: US (occurrence: US)
  Receive Date: 20181005
  Receipt Date: 20181005
  Transmission Date: 20190204
  Serious: No
  Sender: FDA-Public Use
  Company Number: US-009507513-1010USA01858

PATIENT
  Age: 35 Year
  Sex: Female

DRUGS (9)
  1. ISENTRESS [Suspect]
     Active Substance: RALTEGRAVIR POTASSIUM
     Indication: HIV INFECTION
     Dosage: 800 MG, QD
     Route: 048
     Dates: start: 201005
  2. VIRACEPT [Suspect]
     Active Substance: NELFINAVIR MESYLATE
     Dosage: 2500 MG, QD
     Route: 048
     Dates: start: 201005, end: 20100715
  3. RETROVIR [Suspect]
     Active Substance: ZIDOVUDINE
     Dosage: 2000 MG, QD
     Route: 042
     Dates: start: 201010, end: 20101001
  4. SULFAMETHOXAZOLE (+) TRIMETHOPRIM [Suspect]
     Active Substance: SULFAMETHOXAZOLE\TRIMETHOPRIM
  5. TRUVADA [Suspect]
     Active Substance: EMTRICITABINE\TENOFOVIR DISOPROXIL FUMARATE
     Dosage: 1 DF, QD
     Route: 048
     Dates: start: 201007
  6. INTELENCE [Suspect]
     Active Substance: ETRAVIRINE
     Dosage: 400 MG, QD
     Route: 048
     Dates: start: 201005, end: 20100715
  7. PREZISTA [Suspect]
     Active Substance: DARUNAVIR ETHANOLATE
     Dosage: 1200 MG, QD
     Route: 048
     Dates: start: 201009
  8. VIRAMUNE [Suspect]
     Active Substance: NEVIRAPINE
     Dosage: 200 MG, QD
     Route: 048
     Dates: start: 201010, end: 20101001
  9. NORVIR [Suspect]
     Active Substance: RITONAVIR
     Dosage: 200 MG, QD
     Route: 048
     Dates: start: 201009

REACTIONS (1)
  - Exposure during pregnancy [Recovered/Resolved]
